FAERS Safety Report 6068079-1 (Version None)
Quarter: 2009Q1

REPORT INFORMATION
  Report Type: 
  Country: None (occurrence: None)
  Receive Date: 20090206
  Receipt Date: 20090131
  Transmission Date: 20090719
  Serious: Yes (Hospitalization, Other)
  Sender: FDA-Public Use
  Company Number: US-AMGEN-QUU331461

PATIENT
  Sex: Female

DRUGS (1)
  1. ENBREL [Suspect]
     Indication: RHEUMATOID ARTHRITIS
     Route: 058
     Dates: start: 20070606

REACTIONS (4)
  - ABSCESS LIMB [None]
  - ARTHRALGIA [None]
  - PARAPLEGIA [None]
  - RHEUMATOID ARTHRITIS [None]
